FAERS Safety Report 7081412-7 (Version None)
Quarter: 2010Q4

REPORT INFORMATION
  Report Type: 
  Country: None (occurrence: None)
  Receive Date: 20101102
  Receipt Date: 20101102
  Transmission Date: 20110411
  Serious: Yes (Other)
  Sender: FDA-Public Use
  Company Number: None

PATIENT
  Age: 44 Year
  Sex: Female
  Weight: 122.4712 kg

DRUGS (2)
  1. CYMBALTA [Suspect]
     Indication: BIPOLAR DISORDER
     Dosage: 1 CAPSULE ONCE A DAY PO
     Route: 048
     Dates: start: 20070605, end: 20101027
  2. CYMBALTA [Suspect]
     Indication: GENERALISED ANXIETY DISORDER
     Dosage: 1 CAPSULE ONCE A DAY PO
     Route: 048
     Dates: start: 20070605, end: 20101027

REACTIONS (10)
  - ANGER [None]
  - CRYING [None]
  - DEHYDRATION [None]
  - DRUG DOSE OMISSION [None]
  - DRUG WITHDRAWAL SYNDROME [None]
  - FORMICATION [None]
  - PARAESTHESIA [None]
  - RESTLESSNESS [None]
  - SELF-INJURIOUS IDEATION [None]
  - SUICIDAL IDEATION [None]
